FAERS Safety Report 4781577-3 (Version None)
Quarter: 2005Q3

REPORT INFORMATION
  Report Type: 
  Country: None (occurrence: None)
  Receive Date: 20050927
  Receipt Date: 20050921
  Transmission Date: 20060218
  Serious: Yes (Life-Threatening, Hospitalization)
  Sender: FDA-Public Use
  Company Number: THQ2005A00407

PATIENT
  Age: 83 Year
  Sex: Male

DRUGS (9)
  1. HELICLEAR (LANSOPRAZOLE, CLARITHROMYCIN, AMOXICILLIN) [Suspect]
     Indication: PYLORIC STENOSIS
     Dosage: (VARYING DOSES); PER ORAL
     Route: 048
     Dates: start: 20050416, end: 20050416
  2. LANSOPRAZOLE [Concomitant]
  3. PRIMASPAN (ACETYLSALICYLIC ACID) [Concomitant]
  4. EBIXA (MEMANTINE HYDROCHLORIDE) [Concomitant]
  5. ARICEPT [Concomitant]
  6. RAMIPRIL [Concomitant]
  7. SERETIDE (SERETIDE MITE) [Concomitant]
  8. ATARAX [Concomitant]
  9. PERSANTIN DEPOT (DIPYRIDAMOLE) [Concomitant]

REACTIONS (10)
  - ABASIA [None]
  - ANAPHYLACTIC SHOCK [None]
  - ATRIAL FIBRILLATION [None]
  - BLOOD PRESSURE FLUCTUATION [None]
  - CONDITION AGGRAVATED [None]
  - DEMENTIA [None]
  - EXTRASYSTOLES [None]
  - INFECTION [None]
  - ORAL FUNGAL INFECTION [None]
  - PYREXIA [None]
